FAERS Safety Report 4542265-1 (Version None)
Quarter: 2004Q4

REPORT INFORMATION
  Report Type: 
  Country: None (occurrence: None)
  Receive Date: 20041227
  Receipt Date: 20041208
  Transmission Date: 20050328
  Serious: Yes (Hospitalization)
  Sender: FDA-Public Use
  Company Number: MEDI-0002306

PATIENT
  Age: 17 Month
  Sex: Male
  Weight: 10.8863 kg

DRUGS (5)
  1. SYNAGIS [Suspect]
     Indication: ANTIVIRAL PROPHYLAXIS
     Dosage: 169 MG, 1 IN 30 D, INTRAMUSCULAR
     Route: 030
     Dates: start: 20041013, end: 20041013
  2. SYNAGIS [Suspect]
     Indication: ANTIVIRAL PROPHYLAXIS
     Dosage: 169 MG, 1 IN 30 D, INTRAMUSCULAR
     Route: 030
     Dates: start: 20041115
  3. VALIUM [Concomitant]
  4. PHENOBARBITAL TAB [Concomitant]
  5. ZANTAC [Concomitant]

REACTIONS (6)
  - CONDITION AGGRAVATED [None]
  - NASAL CONGESTION [None]
  - PYREXIA [None]
  - RESPIRATORY DISORDER [None]
  - RESPIRATORY RATE INCREASED [None]
  - TONIC CONVULSION [None]
